FAERS Safety Report 4430537-0 (Version None)
Quarter: 2004Q3

REPORT INFORMATION
  Report Type: 
  Country: None (occurrence: None)
  Receive Date: 20040818
  Receipt Date: 20040809
  Transmission Date: 20050211
  Serious: Yes (Hospitalization)
  Sender: FDA-Public Use
  Company Number: 2004227829SE

PATIENT
  Age: 57 Year
  Sex: Female

DRUGS (3)
  1. CELEBREX [Suspect]
     Indication: OSTEOARTHRITIS
     Dosage: 200 MG, QD,ORAL
     Route: 048
     Dates: start: 20020101, end: 20020801
  2. PHENYLPROPANOLAMINE HCL [Suspect]
     Indication: INFECTION
     Dosage: ORAL
     Route: 048
     Dates: start: 20020812
  3. KAVEPENIN (PHENOXYMETHYLPENICILLIN POTASSIUM) [Concomitant]

REACTIONS (5)
  - BLOOD PRESSURE SYSTOLIC INCREASED [None]
  - CEREBRAL THROMBOSIS [None]
  - RETINAL VEIN THROMBOSIS [None]
  - SINUSITIS [None]
  - VISUAL ACUITY REDUCED [None]
